FAERS Safety Report 13362996 (Version 1)
Quarter: 2017Q1

REPORT INFORMATION
  Report Type: Report from Study
  Country: ES (occurrence: ES)
  Receive Date: 20170323
  Receipt Date: 20170323
  Transmission Date: 20170429
  Serious: No
  Sender: FDA-Public Use
  Company Number: ES-ARIAD PHARMACEUTICALS, INC-2016ES006999

PATIENT
  Age: 70 Year
  Sex: Female

DRUGS (11)
  1. OMEPRAZOLE. [Concomitant]
     Active Substance: OMEPRAZOLE
     Indication: PROPHYLAXIS
     Dosage: UNK
     Route: 048
  2. ZOLPIDEM [Concomitant]
     Active Substance: ZOLPIDEM\ZOLPIDEM TARTRATE
     Indication: INSOMNIA
     Dosage: UNK
     Route: 048
  3. OLMESARTAN MEDOXOMILO [Concomitant]
     Indication: HYPERTENSION
     Dosage: UNK
     Route: 048
  4. HYPROMELLOSE [Concomitant]
     Active Substance: HYPROMELLOSES
     Indication: BLEPHARITIS
     Dosage: UNK
     Route: 061
     Dates: start: 20111010
  5. PARACETAMOL [Concomitant]
     Active Substance: ACETAMINOPHEN
     Indication: PAIN IN EXTREMITY
     Dosage: UNK
     Route: 048
     Dates: start: 20130703
  6. DOCOSAHEXAENOIC ACID [Concomitant]
     Active Substance: DOCONEXENT
     Indication: BLEPHARITIS
     Dosage: UNK
     Route: 048
     Dates: start: 20130610
  7. PONATINIB [Suspect]
     Active Substance: PONATINIB
     Indication: CHRONIC MYELOID LEUKAEMIA
     Dosage: 45 MG, QD
     Route: 048
     Dates: start: 20110607
  8. GABAPENTIN. [Concomitant]
     Active Substance: GABAPENTIN
     Indication: PAIN IN EXTREMITY
     Dosage: UNK
     Route: 048
     Dates: start: 20130902
  9. PARACETAMOL [Concomitant]
     Active Substance: ACETAMINOPHEN
     Indication: HAEMOTHORAX
  10. ALOPURINOL [Concomitant]
     Active Substance: ALLOPURINOL
     Indication: BLOOD URIC ACID INCREASED
     Dosage: UNK
     Route: 048
     Dates: start: 20111025
  11. LIPOLAC [Concomitant]
     Indication: BLEPHARITIS
     Dosage: UNK
     Route: 061
     Dates: start: 20111010

REACTIONS (1)
  - Electrocardiogram T wave inversion [Not Recovered/Not Resolved]

NARRATIVE: CASE EVENT DATE: 20160526
